FAERS Safety Report 4786696-3 (Version None)
Quarter: 2005Q4

REPORT INFORMATION
  Report Type: 
  Country: None (occurrence: None)
  Receive Date: 20051004
  Receipt Date: 20050401
  Transmission Date: 20060501
  Serious: Yes (Hospitalization)
  Sender: FDA-Public Use
  Company Number: FI-BOEHRINGER INGELHEIM PHARMACEUTICALS, INC.-2005-SW-00143SF

PATIENT
  Age: 59 Year
  Sex: Male

DRUGS (4)
  1. SIFROL TAB. 0.18 MG [Suspect]
     Indication: PARKINSON'S DISEASE
     Route: 048
     Dates: start: 20050314, end: 20050318
  2. STALEVO 100 [Concomitant]
     Indication: PARKINSON'S DISEASE
     Dosage: 50/12/200 ENTACAPONE/LEVODOPA/CARBIDOPA
  3. PRIMASPAN [Concomitant]
  4. TENOX [Concomitant]
     Dosage: AS REQUIRED

REACTIONS (3)
  - PLEURAL DISORDER [None]
  - PLEURISY [None]
  - PYREXIA [None]
